FAERS Safety Report 8850509 (Version 3)
Quarter: 2012Q4

REPORT INFORMATION
  Report Type: 
  Country: IL (occurrence: IL)
  Receive Date: 20121019
  Receipt Date: 20121031
  Transmission Date: 20130627
  Serious: Yes (Death, Hospitalization)
  Sender: FDA-Public Use
  Company Number: IL-B.I. PHARMACEUTICALS,INC./RIDGEFIELD-2012-AP-00897RI

PATIENT
  Age: 80 Year
  Sex: Female

DRUGS (4)
  1. PRADAXA [Suspect]
     Indication: ATRIAL FIBRILLATION
     Dosage: 220 mg
     Route: 048
     Dates: start: 201205, end: 20120912
  2. AMLOW [Concomitant]
     Indication: HYPERTENSION
     Dosage: 5 mg
     Route: 048
  3. DEXAMETHASONE [Concomitant]
     Indication: BRAIN OEDEMA
     Dosage: 8 mg
     Route: 048
  4. DIGOXIN [Concomitant]
     Indication: ATRIAL FIBRILLATION
     Dosage: 0.125 mg
     Route: 048

REACTIONS (11)
  - Ischaemic cerebral infarction [Fatal]
  - Coma [Fatal]
  - Pneumonia aspiration [Recovered/Resolved]
  - Headache [Unknown]
  - Asthenia [Unknown]
  - Hemiparesis [Unknown]
  - Speech disorder [Unknown]
  - Cerebral artery thrombosis [Unknown]
  - Cerebral artery thrombosis [Unknown]
  - Sinus tachycardia [Unknown]
  - Haematemesis [Unknown]
